FAERS Safety Report 5715566-9 (Version None)
Quarter: 2008Q2

REPORT INFORMATION
  Report Type: 
  Country: None (occurrence: None)
  Receive Date: 20080424
  Receipt Date: 20080414
  Transmission Date: 20081010
  Serious: Yes (Other)
  Sender: FDA-Public Use
  Company Number: MY-RANBAXY-2008R3-14525

PATIENT

DRUGS (7)
  1. CLINDAMYCIN HCL [Suspect]
     Dosage: UNK MG, UNK
     Route: 048
  2. LAMIVUDINE [Concomitant]
  3. EFAVIRENZ [Concomitant]
  4. STAVUDINE [Concomitant]
  5. FERROUS FUMARATE [Concomitant]
  6. PYRIMETHAMINE TAB [Concomitant]
  7. FOLIC ACID [Concomitant]

REACTIONS (2)
  - CONVULSION [None]
  - INSOMNIA [None]
